FAERS Safety Report 5779140-0 (Version None)
Quarter: 2008Q2

REPORT INFORMATION
  Report Type: 
  Country: None (occurrence: None)
  Receive Date: 20080619
  Receipt Date: 20080617
  Transmission Date: 20081010
  Serious: Yes (Death)
  Sender: FDA-Public Use
  Company Number: JP-SANOFI-SYNTHELABO-F01200801041

PATIENT
  Sex: Female
  Weight: 56.3 kg

DRUGS (13)
  1. NASEA [Concomitant]
     Dosage: UNK
     Dates: start: 20070725, end: 20070725
  2. DECADRON [Concomitant]
     Dosage: UNK
     Dates: start: 20070710, end: 20070724
  3. KYTRIL [Concomitant]
     Dosage: UNK
     Dates: start: 20070710, end: 20070724
  4. ALDACTONE [Concomitant]
     Dosage: UNK
     Dates: start: 20070710, end: 20070731
  5. LASIX [Concomitant]
     Dosage: UNK
     Dates: start: 20070710, end: 20070731
  6. LANSOPRAZOLE [Concomitant]
     Dosage: UNK
     Dates: start: 20070710, end: 20070731
  7. MAGLAX [Concomitant]
     Dosage: UNK
     Dates: start: 20070710, end: 20070731
  8. MIYA BM [Concomitant]
     Dosage: UNK
     Dates: start: 20070710, end: 20070731
  9. AVASTIN [Suspect]
     Route: 041
     Dates: start: 20071211, end: 20071211
  10. IRINOTECAN HCL [Suspect]
     Route: 041
     Dates: start: 20070904, end: 20071016
  11. CALCIUM LEVOFOLINATE [Suspect]
     Dosage: UNK
     Route: 041
     Dates: start: 20071211, end: 20071211
  12. FLUOROURACIL [Suspect]
     Dosage: UNK
     Route: 042
     Dates: start: 20071211, end: 20071213
  13. ELPLAT [Suspect]
     Indication: RECTAL CANCER METASTATIC
     Dosage: UNK
     Route: 041
     Dates: start: 20071211, end: 20071211

REACTIONS (1)
  - PULMONARY THROMBOSIS [None]
